FAERS Safety Report 5284877-6 (Version None)
Quarter: 2007Q1

REPORT INFORMATION
  Report Type: 
  Country: None (occurrence: None)
  Receive Date: 20061229
  Receipt Date: 20060817
  Transmission Date: 20070707
  Serious: Yes (Other)
  Sender: FDA-Public Use
  Company Number: PHEH2006US10579

PATIENT
  Sex: Female

DRUGS (1)
  1. CLOZARIL [Suspect]
     Indication: SCHIZOPHRENIA
     Dosage: 500 MG, QD, ORAL
     Route: 048

REACTIONS (3)
  - ABNORMAL BEHAVIOUR [None]
  - PARANOIA [None]
  - PSYCHOTIC DISORDER [None]
